FAERS Safety Report 11172841 (Version 1)
Quarter: 2015Q2

REPORT INFORMATION
  Report Type: Spontaneous
  Country: US (occurrence: US)
  Receive Date: 20150608
  Receipt Date: 20150608
  Transmission Date: 20150821
  Serious: Yes (Other)
  Sender: FDA-Public Use
  Company Number: US-LPDUSPRD-20150403

PATIENT
  Age: 86 Year
  Sex: Female

DRUGS (2)
  1. EPINEPHRINE INJECTION, USP (1071-25) 1 MG/ML [Suspect]
     Active Substance: EPINEPHRINE
     Dosage: DOSE NOT PROVIDED
     Route: 051
  2. LIDOCAINE HCL [Suspect]
     Active Substance: LIDOCAINE HYDROCHLORIDE
     Dosage: DOSE NOT PROVIDED
     Route: 051

REACTIONS (2)
  - Drug interaction [Unknown]
  - Lagophthalmos [Unknown]
